FAERS Safety Report 8562652 (Version 6)
Quarter: 2014Q2

REPORT INFORMATION
  Report Type: Report from Study
  Country: US (occurrence: US)
  Receive Date: 20120515
  Receipt Date: 20140429
  Transmission Date: 20141212
  Serious: Yes (Hospitalization, Other)
  Sender: FDA-Public Use
  Company Number: US-ACTELION-A-US2006-13449

PATIENT
  Age: 61 Year
  Sex: Female

DRUGS (5)
  1. TRACLEER [Suspect]
     Indication: PULMONARY ARTERIAL HYPERTENSION
     Dosage: 125 MG, BID
     Route: 048
     Dates: start: 200404
  2. REVATIO [Concomitant]
     Indication: PULMONARY HYPERTENSION
     Dosage: 20 MG (TITER), TID
     Dates: start: 2010
  3. COUMADIN [Concomitant]
  4. REQUIP [Concomitant]
     Indication: RESTLESS LEGS SYNDROME
     Dosage: 8 MG, OD
     Dates: start: 2010
  5. OXYGEN [Concomitant]
     Dosage: UNK

REACTIONS (24)
  - Thrombosis [Unknown]
  - Asthma [Unknown]
  - Fall [Unknown]
  - Chronic obstructive pulmonary disease [Recovered/Resolved]
  - Urinary tract infection [Recovered/Resolved]
  - Pyrexia [Recovered/Resolved]
  - Oxygen saturation decreased [Recovered/Resolved]
  - Cardiac failure congestive [Recovered/Resolved]
  - Syncope [Recovered/Resolved]
  - Blood glucose abnormal [Recovered/Resolved]
  - Pulmonary hypertension [Recovered/Resolved]
  - Vertigo [Recovered/Resolved]
  - Dyspnoea [Recovered/Resolved]
  - Dizziness [Unknown]
  - Drug dose omission [Unknown]
  - Presyncope [Unknown]
  - Pleuritic pain [Unknown]
  - Musculoskeletal chest pain [Unknown]
  - Back pain [Unknown]
  - Fatigue [Unknown]
  - Asthenia [Recovered/Resolved]
  - Dizziness postural [Recovered/Resolved]
  - Dehydration [Unknown]
  - Diarrhoea [Unknown]
